FAERS Safety Report 5249607-2 (Version None)
Quarter: 2007Q1

REPORT INFORMATION
  Report Type: 
  Country: None (occurrence: None)
  Receive Date: 20070228
  Receipt Date: 20060503
  Transmission Date: 20070707
  Serious: Yes (Other)
  Sender: FDA-Public Use
  Company Number: US-GLAXOSMITHKLINE-A0602453A

PATIENT
  Age: 51 Year
  Sex: Female
  Weight: 79.5 kg

DRUGS (6)
  1. IMITREX [Suspect]
     Indication: MIGRAINE
     Dosage: 6MG SINGLE DOSE
     Route: 058
     Dates: start: 20060424, end: 20060424
  2. WELLBUTRIN [Concomitant]
  3. LEXAPRO [Concomitant]
  4. THYROID TAB [Concomitant]
     Indication: HYPOTHYROIDISM
  5. NEURONTIN [Concomitant]
  6. VICODIN [Concomitant]

REACTIONS (3)
  - INJECTION SITE PRURITUS [None]
  - INJECTION SITE URTICARIA [None]
  - URTICARIA [None]
